FAERS Safety Report 5887348-9 (Version None)
Quarter: 2008Q3

REPORT INFORMATION
  Report Type: 
  Country: None (occurrence: None)
  Receive Date: 20080918
  Receipt Date: 20080910
  Transmission Date: 20090109
  Serious: Yes (Hospitalization)
  Sender: FDA-Public Use
  Company Number: US-JNJFOC-20071200584

PATIENT
  Sex: Female
  Weight: 92.8 kg

DRUGS (3)
  1. ORTHO EVRA [Suspect]
     Indication: CONTRACEPTION
     Route: 062
  2. ADVIL [Concomitant]
     Indication: DRUG USE FOR UNKNOWN INDICATION
  3. TYLENOL (CAPLET) [Concomitant]
     Indication: DRUG USE FOR UNKNOWN INDICATION

REACTIONS (1)
  - PNEUMONIA [None]
